APPROVED DRUG PRODUCT: NIFEDIPINE
Active Ingredient: NIFEDIPINE
Strength: 30MG
Dosage Form/Route: TABLET, EXTENDED RELEASE;ORAL
Application: A202987 | Product #001 | TE Code: AB1
Applicant: NOVAST LABORATORIES LTD
Approved: Aug 25, 2016 | RLD: No | RS: No | Type: RX